FAERS Safety Report 6531882-5 (Version None)
Quarter: 2010Q1

REPORT INFORMATION
  Report Type: 
  Country: None (occurrence: None)
  Receive Date: 20100108
  Receipt Date: 20091231
  Transmission Date: 20100710
  Serious: Yes (Other)
  Sender: FDA-Public Use
  Company Number: US-JNJFOC-20060705342

PATIENT
  Sex: Female

DRUGS (4)
  1. RISPERDAL [Suspect]
     Indication: DEPRESSION
     Route: 048
  2. XANAX [Concomitant]
  3. TRAZODONE HCL [Concomitant]
  4. PARLODEL [Concomitant]
     Route: 065

REACTIONS (4)
  - DIABETES MELLITUS [None]
  - GALACTORRHOEA [None]
  - NEUROPATHY PERIPHERAL [None]
  - PROLACTINOMA [None]
